FAERS Safety Report 4991110-9 (Version None)
Quarter: 2006Q2

REPORT INFORMATION
  Report Type: 
  Country: None (occurrence: None)
  Receive Date: 20060428
  Receipt Date: 20060414
  Transmission Date: 20061013
  Serious: Yes (Death)
  Sender: FDA-Public Use
  Company Number: 2006P1000230

PATIENT
  Age: 72 Year
  Sex: Male
  Weight: 115 kg

DRUGS (7)
  1. RETEPLASE (RETEPLASE) [Suspect]
     Indication: ACUTE MYOCARDIAL INFARCTION
     Dosage: SEE IMAGE
     Route: 040
     Dates: start: 20040724, end: 20040725
  2. RETEPLASE (RETEPLASE) [Suspect]
     Indication: ACUTE MYOCARDIAL INFARCTION
     Dosage: SEE IMAGE
     Route: 040
     Dates: start: 20040725, end: 20040725
  3. ABCIXIMAB (AVCIXIMAB) [Suspect]
     Indication: ACUTE MYOCARDIAL INFARCTION
     Dosage: SEE IMAGE
     Route: 040
     Dates: start: 20040725, end: 20040725
  4. ABCIXIMAB (AVCIXIMAB) [Suspect]
     Indication: ACUTE MYOCARDIAL INFARCTION
     Dosage: SEE IMAGE
     Route: 040
     Dates: start: 20040725, end: 20040725
  5. HEPARIN [Concomitant]
  6. ACETYLSALICYLIC ACID SRT [Concomitant]
  7. ACE INHIBITOR NOS [Concomitant]

REACTIONS (2)
  - BLOOD GLUCOSE INCREASED [None]
  - CORONARY ARTERY THROMBOSIS [None]
